FAERS Safety Report 23976843 (Version 1)
Quarter: 2024Q2

REPORT INFORMATION
  Report Type: Report from Study
  Country: US (occurrence: US)
  Receive Date: 20240614
  Receipt Date: 20240614
  Transmission Date: 20240716
  Serious: Yes (Death, Other)
  Sender: FDA-Public Use
  Company Number: US-SUN PHARMACEUTICAL INDUSTRIES LTD-2024R1-451234

PATIENT
  Age: 57 Year
  Sex: Female

DRUGS (1)
  1. HYDROXYCHLOROQUINE [Suspect]
     Active Substance: HYDROXYCHLOROQUINE
     Indication: Mixed connective tissue disease
     Dosage: 400 MILLIGRAM, DAILY
     Route: 065

REACTIONS (2)
  - Cardiotoxicity [Fatal]
  - Red blood cell vacuolisation [Fatal]
